FAERS Safety Report 10622417 (Version 1)
Quarter: 2014Q4

REPORT INFORMATION
  Report Type: Spontaneous
  Country: US (occurrence: None)
  Receive Date: 20141202
  Receipt Date: 20141202
  Transmission Date: 20150529
  Serious: No
  Sender: FDA-Public Use
  Company Number: None

PATIENT
  Age: 51 Year
  Sex: Male
  Weight: 120.2 kg

DRUGS (2)
  1. HUMIRA [Suspect]
     Active Substance: ADALIMUMAB
     Indication: ARTHRITIS
     Dosage: 40MG EVERY 2 WEEKS SUBCUTANEOUS
     Route: 058
     Dates: start: 20140801, end: 20141101
  2. OTREXUP [Concomitant]
     Active Substance: METHOTREXATE

REACTIONS (3)
  - Cardiac failure congestive [None]
  - Condition aggravated [None]
  - Myopathy [None]

NARRATIVE: CASE EVENT DATE: 20140801
